FAERS Safety Report 22998139 (Version 2)
Quarter: 2023Q4

REPORT INFORMATION
  Report Type: Spontaneous
  Country: DE (occurrence: DE)
  Receive Date: 20230928
  Receipt Date: 20231116
  Transmission Date: 20240110
  Serious: Yes (Hospitalization, Other)
  Sender: FDA-Public Use
  Company Number: None

PATIENT
  Age: 24 Year
  Sex: Male

DRUGS (21)
  1. QUETIAPINE [Suspect]
     Active Substance: QUETIAPINE
     Indication: Product used for unknown indication
     Dates: start: 20191010, end: 20191030
  2. QUETIAPINE [Suspect]
     Active Substance: QUETIAPINE
     Dates: start: 20190830, end: 20191009
  3. METAMIZOLE [Suspect]
     Active Substance: METAMIZOLE
     Indication: Product used for unknown indication
     Dates: start: 20191028, end: 20191028
  4. METAMIZOLE [Suspect]
     Active Substance: METAMIZOLE
     Dates: start: 20191029
  5. METAMIZOLE [Suspect]
     Active Substance: METAMIZOLE
     Dates: start: 20190901, end: 20190905
  6. METAMIZOLE [Suspect]
     Active Substance: METAMIZOLE
     Dates: start: 20190906, end: 20191027
  7. VALPROATE [Suspect]
     Active Substance: VALPROIC ACID
     Indication: Product used for unknown indication
     Dates: start: 20191106
  8. VALPROATE [Suspect]
     Active Substance: VALPROIC ACID
     Dates: start: 20190807, end: 20190829
  9. VALPROATE [Suspect]
     Active Substance: VALPROIC ACID
     Dates: start: 20190830, end: 20191014
  10. VALPROATE [Suspect]
     Active Substance: VALPROIC ACID
     Dates: start: 20190101, end: 20190806
  11. VALPROATE [Suspect]
     Active Substance: VALPROIC ACID
     Dates: start: 20191015, end: 20191105
  12. LITHIUM CARBONATE [Concomitant]
     Active Substance: LITHIUM CARBONATE
     Indication: Product used for unknown indication
     Dates: start: 20190101, end: 20190911
  13. LITHIUM CARBONATE [Concomitant]
     Active Substance: LITHIUM CARBONATE
     Dates: start: 20191017
  14. LITHIUM CARBONATE [Concomitant]
     Active Substance: LITHIUM CARBONATE
     Dates: start: 20190912, end: 20191016
  15. PANTOPRAZOLE [Concomitant]
     Active Substance: PANTOPRAZOLE
     Indication: Product used for unknown indication
     Dates: start: 20190901, end: 20191030
  16. NALOXONE HYDROCHLORIDE\TILIDINE HYDROCHLORIDE [Concomitant]
     Active Substance: NALOXONE HYDROCHLORIDE\TILIDINE HYDROCHLORIDE
     Indication: Product used for unknown indication
     Dosage: 100 MG/8 MG
     Dates: start: 20190901, end: 20191008
  17. NALOXONE HYDROCHLORIDE\TILIDINE HYDROCHLORIDE [Concomitant]
     Active Substance: NALOXONE HYDROCHLORIDE\TILIDINE HYDROCHLORIDE
     Dosage: 50MG/4 MG
     Dates: start: 20191009, end: 20191017
  18. MILNACIPRAN [Concomitant]
     Active Substance: MILNACIPRAN
     Indication: Product used for unknown indication
     Dates: start: 20190807, end: 20190808
  19. MILNACIPRAN [Concomitant]
     Active Substance: MILNACIPRAN
     Dates: start: 20191015, end: 20191016
  20. MILNACIPRAN [Concomitant]
     Active Substance: MILNACIPRAN
     Dates: start: 20190829, end: 20191014
  21. LEVOTHYROXINE SODIUM [Concomitant]
     Active Substance: LEVOTHYROXINE SODIUM
     Indication: Product used for unknown indication
     Dates: start: 20190101

REACTIONS (1)
  - Gamma-glutamyltransferase increased [Recovering/Resolving]

NARRATIVE: CASE EVENT DATE: 20190930
